FAERS Safety Report 4445507-6 (Version None)
Quarter: 2004Q3

REPORT INFORMATION
  Report Type: 
  Country: None (occurrence: None)
  Receive Date: 20040809
  Receipt Date: 20040525
  Transmission Date: 20050211
  Serious: Yes (Hospitalization, Other)
  Sender: FDA-Public Use
  Company Number: USA040465493

PATIENT
  Age: 68 Year
  Sex: Female
  Weight: 91 kg

DRUGS (6)
  1. EVISTA [Suspect]
     Dosage: 60 MG
     Dates: start: 19980101, end: 20040101
  2. ZOCOR [Concomitant]
  3. ATACAND HCT [Concomitant]
  4. TIAZAC [Concomitant]
  5. SYNTHROID [Concomitant]
  6. TOPROL-XL [Concomitant]

REACTIONS (4)
  - BLOOD THYROID STIMULATING HORMONE INCREASED [None]
  - DEMENTIA ALZHEIMER'S TYPE [None]
  - LUNG NEOPLASM [None]
  - PULMONARY EMBOLISM [None]
